FAERS Safety Report 15862278 (Version 2)
Quarter: 2019Q3

REPORT INFORMATION
  Report Type: Report from Study
  Country: US (occurrence: US)
  Receive Date: 20190124
  Receipt Date: 20190827
  Transmission Date: 20191004
  Serious: No
  Sender: FDA-Public Use
  Company Number: PHEH2019US003391

PATIENT
  Sex: Female

DRUGS (1)
  1. GILENYA [Suspect]
     Active Substance: FINGOLIMOD HYDROCHLORIDE
     Indication: PRODUCT USED FOR UNKNOWN INDICATION
     Dosage: UNK
     Route: 065
     Dates: start: 20180303, end: 201808

REACTIONS (1)
  - Hepatic enzyme increased [Unknown]
